FAERS Safety Report 9747250 (Version 59)
Quarter: 2016Q4

REPORT INFORMATION
  Report Type: Spontaneous
  Country: CA (occurrence: CA)
  Receive Date: 20131212
  Receipt Date: 20161120
  Transmission Date: 20170207
  Serious: Yes (Hospitalization, Other)
  Sender: FDA-Public Use
  Company Number: CA-ROCHE-1318238

PATIENT
  Age: 52 Year
  Sex: Female

DRUGS (87)
  1. XOLAIR [Suspect]
     Active Substance: OMALIZUMAB
     Dosage: UNK
     Route: 058
     Dates: start: 20140212
  2. XOLAIR [Suspect]
     Active Substance: OMALIZUMAB
     Dosage: UNK
     Route: 058
     Dates: start: 20150304
  3. XOLAIR [Suspect]
     Active Substance: OMALIZUMAB
     Dosage: UNK
     Route: 058
     Dates: start: 20150706
  4. PREDNISONE. [Suspect]
     Active Substance: PREDNISONE
     Dosage: 12.5 MG, QD
     Route: 048
  5. PREDNISONE. [Suspect]
     Active Substance: PREDNISONE
     Dosage: 3.5 MG, UNK
     Route: 048
  6. PREDNISONE. [Suspect]
     Active Substance: PREDNISONE
     Dosage: 7.5 MG, QD
     Route: 048
  7. PREDNISONE. [Suspect]
     Active Substance: PREDNISONE
     Dosage: 7 MG, QD
     Route: 048
  8. IMURAN [Suspect]
     Active Substance: AZATHIOPRINE
     Dosage: 150 MG, QD
     Route: 048
  9. MONTELUKAST [Suspect]
     Active Substance: MONTELUKAST SODIUM
     Indication: ASTHMA
     Dosage: FORN:POR
     Route: 048
     Dates: start: 20161004
  10. XOLAIR [Suspect]
     Active Substance: OMALIZUMAB
     Dosage: UNK
     Route: 058
     Dates: start: 20130702
  11. XOLAIR [Suspect]
     Active Substance: OMALIZUMAB
     Dosage: UNK
     Route: 058
     Dates: start: 20130821
  12. XOLAIR [Suspect]
     Active Substance: OMALIZUMAB
     Dosage: UNK
     Route: 058
     Dates: start: 20130925
  13. XOLAIR [Suspect]
     Active Substance: OMALIZUMAB
     Dosage: UNK
     Route: 058
     Dates: start: 20141126
  14. XOLAIR [Suspect]
     Active Substance: OMALIZUMAB
     Dosage: UNK
     Route: 058
     Dates: start: 20150401
  15. XOLAIR [Suspect]
     Active Substance: OMALIZUMAB
     Dosage: UNK
     Route: 058
     Dates: start: 20160217
  16. PREDNISONE. [Suspect]
     Active Substance: PREDNISONE
     Dosage: 15 MG, UNK
     Route: 048
  17. PREDNISONE. [Suspect]
     Active Substance: PREDNISONE
     Dosage: 11.25 MG, UNK
     Route: 048
  18. PREDNISONE. [Suspect]
     Active Substance: PREDNISONE
     Dosage: 10 MG, QD
     Route: 048
     Dates: start: 20140619
  19. PREDNISONE. [Suspect]
     Active Substance: PREDNISONE
     Dosage: TAPERING DOSE OF PREDNISONE FROM 7 MG TO 6 MG STARTED 2 WEEKS AGO.
     Route: 048
     Dates: start: 20150623
  20. PREDNISONE. [Suspect]
     Active Substance: PREDNISONE
     Dosage: 5 MG, QD
     Route: 048
  21. PREDNISONE. [Suspect]
     Active Substance: PREDNISONE
     Dosage: 10 MG, UNK
     Route: 065
  22. SALBUTAMOL [Concomitant]
     Active Substance: ALBUTEROL
     Indication: PRODUCT USED FOR UNKNOWN INDICATION
     Dosage: PRN
     Route: 065
  23. SPIRIVA [Concomitant]
     Active Substance: TIOTROPIUM BROMIDE MONOHYDRATE
     Indication: PRODUCT USED FOR UNKNOWN INDICATION
     Route: 065
  24. XOLAIR [Suspect]
     Active Substance: OMALIZUMAB
     Dosage: UNK
     Route: 058
     Dates: start: 20140129
  25. XOLAIR [Suspect]
     Active Substance: OMALIZUMAB
     Dosage: UNK
     Route: 058
     Dates: start: 20140416
  26. XOLAIR [Suspect]
     Active Substance: OMALIZUMAB
     Dosage: UNK
     Route: 058
     Dates: start: 20150819
  27. XOLAIR [Suspect]
     Active Substance: OMALIZUMAB
     Dosage: UNK
     Route: 058
     Dates: start: 20151028
  28. XOLAIR [Suspect]
     Active Substance: OMALIZUMAB
     Dosage: UNK
     Route: 058
     Dates: start: 20160527
  29. XOLAIR [Suspect]
     Active Substance: OMALIZUMAB
     Dosage: UNK
     Route: 058
     Dates: start: 20160622
  30. PREDNISONE. [Suspect]
     Active Substance: PREDNISONE
     Dosage: 5 MG, QD
     Route: 048
  31. PREDNISONE. [Suspect]
     Active Substance: PREDNISONE
     Dosage: 5 MG, UNK
     Route: 065
  32. PREDNISONE. [Suspect]
     Active Substance: PREDNISONE
     Dosage: 10 MG, UNK
     Route: 065
     Dates: start: 20160720
  33. IMURAN [Suspect]
     Active Substance: AZATHIOPRINE
     Indication: INFLAMMATION
     Dosage: 50 MG, QD
     Route: 048
     Dates: start: 20131203
  34. AZATHIOPRINE. [Concomitant]
     Active Substance: AZATHIOPRINE
     Indication: PRODUCT USED FOR UNKNOWN INDICATION
     Dosage: 150 MG,
     Route: 065
  35. XOLAIR [Suspect]
     Active Substance: OMALIZUMAB
     Dosage: UNK
     Route: 058
     Dates: start: 20131106
  36. XOLAIR [Suspect]
     Active Substance: OMALIZUMAB
     Dosage: UNK
     Route: 058
     Dates: start: 20140611
  37. XOLAIR [Suspect]
     Active Substance: OMALIZUMAB
     Dosage: UNK
     Route: 058
     Dates: start: 20151125
  38. XOLAIR [Suspect]
     Active Substance: OMALIZUMAB
     Dosage: UNK
     Route: 058
     Dates: start: 20160302
  39. XOLAIR [Suspect]
     Active Substance: OMALIZUMAB
     Dosage: UNK
     Route: 058
     Dates: start: 20160831
  40. PREDNISONE. [Suspect]
     Active Substance: PREDNISONE
     Dosage: 7.5 MG, QD
     Route: 048
  41. VENTOLIN [Concomitant]
     Active Substance: ALBUTEROL SULFATE
     Indication: PRODUCT USED FOR UNKNOWN INDICATION
     Route: 065
  42. AZATHIOPRINE. [Concomitant]
     Active Substance: AZATHIOPRINE
     Dosage: 200 MG,
     Route: 065
  43. RISEDRONATE [Concomitant]
     Active Substance: RISEDRONATE SODIUM
     Indication: RHONCHI
     Route: 065
  44. XOLAIR [Suspect]
     Active Substance: OMALIZUMAB
     Dosage: UNK
     Route: 058
     Dates: start: 20130731
  45. XOLAIR [Suspect]
     Active Substance: OMALIZUMAB
     Dosage: UNK
     Route: 058
     Dates: start: 20130911
  46. XOLAIR [Suspect]
     Active Substance: OMALIZUMAB
     Dosage: UNK
     Route: 058
     Dates: start: 20131121
  47. XOLAIR [Suspect]
     Active Substance: OMALIZUMAB
     Dosage: UNK
     Route: 058
     Dates: start: 20150610
  48. XOLAIR [Suspect]
     Active Substance: OMALIZUMAB
     Dosage: UNK
     Route: 058
     Dates: start: 20150624
  49. XOLAIR [Suspect]
     Active Substance: OMALIZUMAB
     Dosage: UNK
     Route: 058
     Dates: start: 20151014
  50. XOLAIR [Suspect]
     Active Substance: OMALIZUMAB
     Route: 058
     Dates: start: 20160928
  51. PREDNISONE. [Suspect]
     Active Substance: PREDNISONE
     Dosage: 15 MG, QD
     Route: 048
  52. PREDNISONE. [Suspect]
     Active Substance: PREDNISONE
     Dosage: 7 MG, UNK
     Route: 065
  53. SINGULAIR [Concomitant]
     Active Substance: MONTELUKAST SODIUM
     Indication: PRODUCT USED FOR UNKNOWN INDICATION
     Route: 065
  54. SALBUTAMOL [Concomitant]
     Active Substance: ALBUTEROL
     Dosage: 2 DF (2 PUFFS), 6 TIMES A DAY
     Route: 065
  55. XOLAIR [Suspect]
     Active Substance: OMALIZUMAB
     Indication: ASTHMA
     Route: 058
     Dates: start: 20130508
  56. XOLAIR [Suspect]
     Active Substance: OMALIZUMAB
     Dosage: UNK
     Route: 058
     Dates: start: 20140514
  57. XOLAIR [Suspect]
     Active Substance: OMALIZUMAB
     Dosage: UNK
     Route: 058
     Dates: start: 20160323
  58. XOLAIR [Suspect]
     Active Substance: OMALIZUMAB
     Dosage: UNK
     Route: 058
     Dates: start: 20160720
  59. PREDNISONE. [Suspect]
     Active Substance: PREDNISONE
     Indication: ASTHMA
     Dosage: 50 MG, QD
     Route: 048
  60. PREDNISONE. [Suspect]
     Active Substance: PREDNISONE
     Dosage: 13.75 MG, UNK
     Route: 048
     Dates: start: 20140526
  61. PREDNISONE. [Suspect]
     Active Substance: PREDNISONE
     Dosage: 12.5 MG, QD
     Route: 065
  62. PREDNISONE. [Suspect]
     Active Substance: PREDNISONE
     Dosage: 6 MG, FOR 1 MONTH
     Route: 048
     Dates: start: 20150623
  63. IMURAN [Suspect]
     Active Substance: AZATHIOPRINE
     Dosage: 150 MG, UNK
     Route: 048
  64. TARKA [Concomitant]
     Active Substance: TRANDOLAPRIL\VERAPAMIL HYDROCHLORIDE
     Indication: HEART RATE INCREASED
     Route: 065
  65. XOLAIR [Suspect]
     Active Substance: OMALIZUMAB
     Dosage: UNK
     Route: 058
     Dates: start: 20150318
  66. XOLAIR [Suspect]
     Active Substance: OMALIZUMAB
     Dosage: UNK
     Route: 058
     Dates: start: 20150902
  67. PREDNISONE. [Suspect]
     Active Substance: PREDNISONE
     Dosage: 5 MG, UNK
     Route: 065
  68. ADVAIR HFA [Concomitant]
     Active Substance: FLUTICASONE PROPIONATE\SALMETEROL XINAFOATE
     Indication: PRODUCT USED FOR UNKNOWN INDICATION
     Route: 065
  69. RISPERIDONE. [Concomitant]
     Active Substance: RISPERIDONE
     Indication: PRODUCT USED FOR UNKNOWN INDICATION
     Route: 065
  70. RISEDRONATE [Concomitant]
     Active Substance: RISEDRONATE SODIUM
     Indication: WHEEZING
     Route: 065
  71. MONTELUKAST [Concomitant]
     Active Substance: MONTELUKAST SODIUM
     Indication: ASTHMA
     Dosage: 1 DF, QD
     Route: 048
     Dates: start: 20161004
  72. XOLAIR [Suspect]
     Active Substance: OMALIZUMAB
     Dosage: UNK
     Route: 058
     Dates: start: 20130605
  73. XOLAIR [Suspect]
     Active Substance: OMALIZUMAB
     Dosage: UNK
     Route: 058
     Dates: start: 20130814
  74. XOLAIR [Suspect]
     Active Substance: OMALIZUMAB
     Dosage: UNK
     Route: 058
     Dates: start: 20131023
  75. XOLAIR [Suspect]
     Active Substance: OMALIZUMAB
     Dosage: UNK
     Route: 058
     Dates: start: 20140115
  76. XOLAIR [Suspect]
     Active Substance: OMALIZUMAB
     Dosage: UNK
     Route: 058
     Dates: start: 20140226
  77. XOLAIR [Suspect]
     Active Substance: OMALIZUMAB
     Dosage: UNK
     Route: 058
     Dates: start: 20140402
  78. XOLAIR [Suspect]
     Active Substance: OMALIZUMAB
     Dosage: UNK
     Route: 058
     Dates: start: 20150527
  79. XOLAIR [Suspect]
     Active Substance: OMALIZUMAB
     Dosage: UNK
     Route: 058
     Dates: start: 20151223
  80. XOLAIR [Suspect]
     Active Substance: OMALIZUMAB
     Dosage: UNK
     Route: 058
     Dates: start: 20160914
  81. PREDNISONE. [Suspect]
     Active Substance: PREDNISONE
     Dosage: 12.5 MG, QD
     Route: 048
     Dates: start: 201308
  82. PREDNISONE. [Suspect]
     Active Substance: PREDNISONE
     Dosage: DOSE INCREASED
     Route: 048
  83. PREDNISONE. [Suspect]
     Active Substance: PREDNISONE
     Dosage: 8.75 MG, QD
     Route: 048
  84. PREDNISONE. [Suspect]
     Active Substance: PREDNISONE
     Dosage: 10 MG, QD
     Route: 048
  85. PREDNISONE. [Suspect]
     Active Substance: PREDNISONE
     Dosage: 8 MG, UNK
     Route: 065
  86. IMURAN [Suspect]
     Active Substance: AZATHIOPRINE
     Dosage: 200 MG, QD
     Route: 048
     Dates: start: 20140708
  87. AZATHIOPRINE. [Concomitant]
     Active Substance: AZATHIOPRINE
     Dosage: 250 MG,
     Route: 065
     Dates: start: 20150623

REACTIONS (51)
  - Temporal arteritis [Unknown]
  - Autoimmune disorder [Unknown]
  - Diarrhoea [Recovering/Resolving]
  - Hepatomegaly [Unknown]
  - Sputum discoloured [Unknown]
  - Mobility decreased [Recovering/Resolving]
  - Tendon pain [Recovering/Resolving]
  - Pneumonia [Unknown]
  - Ankle fracture [Unknown]
  - Diabetes mellitus [Unknown]
  - Deafness bilateral [Unknown]
  - Respiratory disorder [Unknown]
  - Retinal disorder [Unknown]
  - Productive cough [Recovering/Resolving]
  - Asthma [Recovering/Resolving]
  - Respiratory rate increased [Unknown]
  - Arthritis [Unknown]
  - Vision blurred [Unknown]
  - Nasopharyngitis [Not Recovered/Not Resolved]
  - Inflammation [Unknown]
  - Rhinorrhoea [Recovering/Resolving]
  - Malaise [Recovered/Resolved]
  - Muscle spasms [Unknown]
  - Chest pain [Recovering/Resolving]
  - Influenza like illness [Recovered/Resolved]
  - Insomnia [Unknown]
  - Myalgia [Unknown]
  - Rhonchi [Not Recovered/Not Resolved]
  - Wheezing [Not Recovered/Not Resolved]
  - Pain [Recovered/Resolved]
  - Influenza [Recovering/Resolving]
  - Burning sensation [Recovered/Resolved]
  - Nephrolithiasis [Unknown]
  - Hyperhidrosis [Recovering/Resolving]
  - Dyspnoea at rest [Unknown]
  - Upper respiratory tract infection [Recovering/Resolving]
  - Lower respiratory tract infection [Unknown]
  - Respiratory tract congestion [Not Recovered/Not Resolved]
  - Breath sounds abnormal [Unknown]
  - Oedema peripheral [Recovered/Resolved]
  - Impaired healing [Unknown]
  - Eye swelling [Recovered/Resolved]
  - Asthenia [Recovering/Resolving]
  - Neuralgia [Unknown]
  - Paranasal sinus discomfort [Recovered/Resolved]
  - Heart rate increased [Unknown]
  - Pleurisy [Unknown]
  - Pharyngitis streptococcal [Unknown]
  - Lymphadenopathy [Unknown]
  - Nocturnal dyspnoea [Unknown]
  - Body temperature decreased [Unknown]

NARRATIVE: CASE EVENT DATE: 20130731
